FAERS Safety Report 7716782-7 (Version None)
Quarter: 2011Q3

REPORT INFORMATION
  Report Type: 
  Country: None (occurrence: None)
  Receive Date: 20110829
  Receipt Date: 20110818
  Transmission Date: 20111222
  Serious: Yes (Hospitalization)
  Sender: FDA-Public Use
  Company Number: US-ASTRAZENECA-2010SE60219

PATIENT
  Age: 54 Year
  Sex: Female
  Weight: 67.1 kg

DRUGS (4)
  1. SEROQUEL XR [Suspect]
     Indication: BIPOLAR DISORDER
     Route: 048
  2. ANTI-DEPRESSANTS [Concomitant]
  3. ZOMIG [Suspect]
     Indication: MIGRAINE
     Route: 048
  4. XANAX [Concomitant]

REACTIONS (16)
  - GAIT DISTURBANCE [None]
  - NEURALGIA [None]
  - HYPERHIDROSIS [None]
  - HERPES ZOSTER [None]
  - VISION BLURRED [None]
  - DIPLOPIA [None]
  - MOBILITY DECREASED [None]
  - DRUG DOSE OMISSION [None]
  - DEPRESSION [None]
  - KIDNEY INFECTION [None]
  - DRUG WITHDRAWAL SYNDROME [None]
  - MIGRAINE [None]
  - VOMITING [None]
  - HEADACHE [None]
  - NIGHTMARE [None]
  - NIGHT SWEATS [None]
